FAERS Safety Report 9641814 (Version 1)
Quarter: 2013Q4

REPORT INFORMATION
  Report Type: Spontaneous
  Country: FR (occurrence: None)
  Receive Date: 20131021
  Receipt Date: 20131021
  Transmission Date: 20140711
  Serious: Yes (Hospitalization, Other)
  Sender: FDA-Public Use
  Company Number: 2013000287

PATIENT
  Age: 84 Year
  Sex: Male

DRUGS (10)
  1. ACEON [Suspect]
     Indication: CARDIAC FAILURE
     Route: 048
     Dates: start: 20070905, end: 20070908
  2. HYDROCORTISONE [Concomitant]
  3. DIFFU K [Concomitant]
  4. CORDARONE [Concomitant]
  5. VASTEN [Concomitant]
  6. ZYLORIC [Concomitant]
  7. PLAVIX [Concomitant]
  8. MOPRAL [Concomitant]
  9. SPECIAFOLDINE [Concomitant]
  10. ZOPICLONE [Concomitant]

REACTIONS (4)
  - Dyspnoea [None]
  - Hypersensitivity [None]
  - Lip oedema [None]
  - Face oedema [None]
